FAERS Safety Report 7480387-6 (Version None)
Quarter: 2011Q2

REPORT INFORMATION
  Report Type: 
  Country: None (occurrence: None)
  Receive Date: 20110504
  Receipt Date: 20110418
  Transmission Date: 20111010
  Serious: Yes (Other)
  Sender: FDA-Public Use
  Company Number: 2009S1003240

PATIENT
  Age: 72 Year
  Sex: Female
  Weight: 61.2356 kg

DRUGS (9)
  1. DAILY MULTIVITAMIN [Concomitant]
  2. ASPIRIN [Concomitant]
  3. CITRATE [Concomitant]
  4. ACEBUTOLOL [Concomitant]
  5. OMEPRAZOLE [Concomitant]
  6. PHOSPHOSODA FLAVOR NOT SPECIFIED [Suspect]
     Indication: COLONOSCOPY
     Dosage: PO
     Route: 048
     Dates: start: 20080618, end: 20080619
  7. LOVASTATIN [Concomitant]
  8. LEVOTHYROXINE SODIUM [Concomitant]
  9. HYDROCHLOROTHIAZIDE [Concomitant]

REACTIONS (5)
  - TUBULOINTERSTITIAL NEPHRITIS [None]
  - ACUTE PHOSPHATE NEPHROPATHY [None]
  - NEPHROSCLEROSIS [None]
  - RENAL FAILURE CHRONIC [None]
  - NEPHROCALCINOSIS [None]
